FAERS Safety Report 25670340 (Version 3)
Quarter: 2025Q3

REPORT INFORMATION
  Report Type: Spontaneous
  Country: US (occurrence: US)
  Receive Date: 20250812
  Receipt Date: 20250818
  Transmission Date: 20251020
  Serious: No
  Sender: PFIZER
  Company Number: US-PFIZER INC-202500074294

PATIENT
  Age: 87 Year
  Sex: Female

DRUGS (2)
  1. BOSULIF [Suspect]
     Active Substance: BOSUTINIB MONOHYDRATE
     Dosage: 300 MG, 1X/DAY (3 PER ORAL (PO) ONCE DAILY (QD) OR AS DIRECTED)
     Route: 048
  2. BOSULIF [Suspect]
     Active Substance: BOSUTINIB MONOHYDRATE
     Dosage: 300 MG, 1X/DAY (3 PER ORAL (PO) ONCE DAILY (QD) OR AS DIRECTED)
     Route: 048

REACTIONS (1)
  - Disturbance in attention [Unknown]
